FAERS Safety Report 15103490 (Version 3)
Quarter: 2018Q4

REPORT INFORMATION
  Report Type: Spontaneous
  Country: MA (occurrence: MA)
  Receive Date: 20180703
  Receipt Date: 20181019
  Transmission Date: 20190204
  Serious: Yes (Other)
  Sender: FDA-Public Use
  Company Number: MA-SEPTODONT-201804653

PATIENT
  Age: 6 Year
  Sex: Male

DRUGS (1)
  1. SEPTANEST 40MG/ML AVEC ADR?NALINE 1/10000 [Suspect]
     Active Substance: ARTICAINE HYDROCHLORIDE\EPINEPHRINE BITARTRATE
     Indication: DENTAL LOCAL ANAESTHESIA
     Dosage: 1/4 CARTRIDGE
     Dates: start: 20180425

REACTIONS (2)
  - Loss of consciousness [Recovered/Resolved]
  - Malaise [Recovered/Resolved]

NARRATIVE: CASE EVENT DATE: 20180425
